FAERS Safety Report 11965355 (Version 1)
Quarter: 2016Q1

REPORT INFORMATION
  Report Type: Spontaneous
  Country: BE (occurrence: BE)
  Receive Date: 20160127
  Receipt Date: 20160127
  Transmission Date: 20160526
  Serious: Yes (Other)
  Sender: FDA-Public Use
  Company Number: BE-SHIRE-BE201600484

PATIENT
  Sex: Female

DRUGS (3)
  1. CINRYZE [Suspect]
     Active Substance: HUMAN C1-ESTERASE INHIBITOR
     Indication: PRODUCT USED FOR UNKNOWN INDICATION
     Dosage: 1000 UNITS, OTHER (2 TIMES PER WEEK)
     Route: 042
  2. CINRYZE [Suspect]
     Active Substance: HUMAN C1-ESTERASE INHIBITOR
     Dosage: 1000 UNITS, OTHER (2 TIMES PER WEEK)
     Route: 042
  3. CINRYZE [Suspect]
     Active Substance: HUMAN C1-ESTERASE INHIBITOR
     Dosage: 1000 UNITS, OTHER (3 TIMES PER WEEK)
     Route: 042

REACTIONS (5)
  - Ependymoma [Unknown]
  - Inappropriate schedule of drug administration [Recovered/Resolved]
  - Device issue [Recovered/Resolved]
  - Arthralgia [Unknown]
  - Hereditary angioedema [Unknown]
